FAERS Safety Report 10174420 (Version 1)
Quarter: 2014Q2

REPORT INFORMATION
  Report Type: Spontaneous
  Country: DE (occurrence: CO)
  Receive Date: 20140515
  Receipt Date: 20140515
  Transmission Date: 20141212
  Serious: Yes (Other)
  Sender: FDA-Public Use
  Company Number: DE-ACTELION-A-US2009-98841

PATIENT
  Sex: Male

DRUGS (1)
  1. VENTAVIS BAYER SCHERING [Suspect]
     Indication: PRODUCT USED FOR UNKNOWN INDICATION
     Dosage: UNK
     Route: 055
     Dates: start: 200905

REACTIONS (1)
  - Toxoplasmosis [Unknown]
